FAERS Safety Report 21994581 (Version 1)
Quarter: 2023Q1

REPORT INFORMATION
  Report Type: Report from Study
  Country: US (occurrence: US)
  Receive Date: 20230215
  Receipt Date: 20230215
  Transmission Date: 20230418
  Serious: Yes (Hospitalization)
  Sender: FDA-Public Use
  Company Number: US-PFIZER INC-PV202300011515

PATIENT
  Age: 36 Year
  Sex: Female
  Weight: 113.4 kg

DRUGS (2)
  1. TALAZOPARIB [Suspect]
     Active Substance: TALAZOPARIB
     Indication: Colon cancer metastatic
     Dosage: TOTAL DOSE ADMINISTERED THIS COURSE 9000 UG
     Dates: start: 20221202, end: 20221219
  2. ZEN-003694 [Suspect]
     Active Substance: ZEN-003694
     Indication: Colon cancer metastatic
     Dosage: TOTAL DOSE ADMINISTERED THIS COURSE 846 MG
     Dates: start: 20221202, end: 20221219

REACTIONS (2)
  - Blood bilirubin increased [Unknown]
  - Platelet count decreased [Recovered/Resolved with Sequelae]

NARRATIVE: CASE EVENT DATE: 20221220
